FAERS Safety Report 8619673-2 (Version None)
Quarter: 2012Q3

REPORT INFORMATION
  Report Type: 
  Country: None (occurrence: None)
  Receive Date: 20120824
  Receipt Date: 20120814
  Transmission Date: 20120928
  Serious: Yes (Death, Hospitalization)
  Sender: FDA-Public Use
  Company Number: US-PFIZER INC-2012189569

PATIENT
  Age: 46 Year
  Sex: Female
  Weight: 62.948 kg

DRUGS (13)
  1. CRIZOTINIB [Suspect]
     Indication: LUNG NEOPLASM MALIGNANT
     Dosage: UNK
     Route: 048
     Dates: start: 20120717, end: 20120730
  2. COMPAZINE [Concomitant]
     Indication: NAUSEA
     Dosage: 10 MG, AS NEEDED, Q6H
     Route: 048
     Dates: start: 20110830
  3. MULTI-VITAMINS [Concomitant]
     Indication: SUPPLEMENTATION THERAPY
     Dosage: 1 DF, 1X/DAY
     Dates: start: 20090728
  4. CRIZOTINIB [Suspect]
     Dosage: 200 MG, 2X/DAY
     Route: 048
     Dates: start: 20120731, end: 20120801
  5. OXYCODONE [Concomitant]
     Indication: BACK PAIN
     Dosage: 5 MG, AS NEEDED, Q4H
     Route: 048
     Dates: start: 20120719
  6. AMBIEN [Concomitant]
     Indication: INSOMNIA
     Dosage: 5 MG, AS NEEDED, QHS
     Route: 048
     Dates: start: 20111129
  7. HYDROCHLOROTHIAZIDE [Concomitant]
     Indication: HYPERTENSION
     Dosage: 12.5 MG, 1X/DAY
     Route: 048
     Dates: start: 20090728
  8. POTASSIUM CHLORIDE [Concomitant]
     Indication: SUPPLEMENTATION THERAPY
     Dosage: 20 MEQ, 1X/DAY
     Route: 048
  9. ATIVAN [Concomitant]
     Indication: ANXIETY
  10. ATIVAN [Concomitant]
     Indication: INSOMNIA
  11. ATIVAN [Concomitant]
     Indication: NAUSEA
     Dosage: 0.5 MG, AS NEEDED, Q6H
     Route: 048
     Dates: start: 20111229
  12. MAGNESIUM OXIDE [Concomitant]
     Indication: SUPPLEMENTATION THERAPY
     Dosage: 400 MG, 1X/DAY
     Route: 048
     Dates: start: 20120703
  13. OVCON-35 [Concomitant]
     Dosage: 35 AS DIRECTED
     Route: 048
     Dates: start: 20090728

REACTIONS (3)
  - LUNG NEOPLASM MALIGNANT [None]
  - HYPOXIA [None]
  - DISEASE PROGRESSION [None]
